FAERS Safety Report 6622291-9 (Version None)
Quarter: 2010Q1

REPORT INFORMATION
  Report Type: 
  Country: None (occurrence: None)
  Receive Date: 20100310
  Receipt Date: 20100223
  Transmission Date: 20100710
  Serious: Yes (Hospitalization, Other)
  Sender: FDA-Public Use
  Company Number: US-ELI_LILLY_AND_COMPANY-US201002007067

PATIENT
  Age: 60 Year
  Sex: Male

DRUGS (2)
  1. EFFIENT [Suspect]
     Dosage: 10 MG, DAILY (1/D)
  2. ASPIRIN [Concomitant]

REACTIONS (2)
  - CEREBROVASCULAR ACCIDENT [None]
  - HAEMORRHAGE INTRACRANIAL [None]
